FAERS Safety Report 7454136-1 (Version None)
Quarter: 2011Q2

REPORT INFORMATION
  Report Type: 
  Country: None (occurrence: None)
  Receive Date: 20110503
  Receipt Date: 20110427
  Transmission Date: 20111010
  Serious: No
  Sender: FDA-Public Use
  Company Number: US-BIOGENIDEC-2011BI000490

PATIENT
  Sex: Female

DRUGS (1)
  1. TYSABRI [Suspect]
     Indication: MULTIPLE SCLEROSIS
     Route: 042
     Dates: start: 20070917

REACTIONS (10)
  - ASTHENIA [None]
  - FATIGUE [None]
  - APHASIA [None]
  - URINARY TRACT INFECTION [None]
  - BLADDER DISORDER [None]
  - MULTIPLE SCLEROSIS [None]
  - GAIT DISTURBANCE [None]
  - CYSTITIS [None]
  - DRUG EFFECT DECREASED [None]
  - DYSPHONIA [None]
